FAERS Safety Report 6375195-3 (Version None)
Quarter: 2009Q3

REPORT INFORMATION
  Report Type: 
  Country: None (occurrence: None)
  Receive Date: 20090921
  Receipt Date: 20090914
  Transmission Date: 20100115
  Serious: Yes (Hospitalization)
  Sender: FDA-Public Use
  Company Number: 2009009898

PATIENT
  Age: 33 Year
  Sex: Male
  Weight: 78 kg

DRUGS (5)
  1. TREANDA [Suspect]
     Indication: HODGKIN'S DISEASE
     Dosage: (120 MG/M2,EACH CYCLE HAS 2 DOSES Q28-DAYS),INTRAVENOUS DRIP
     Route: 041
     Dates: start: 20090810
  2. OXYCODONE HCL [Concomitant]
  3. ACYCLOVIR [Concomitant]
  4. COLACE (DOCUSATE SODIUM) [Concomitant]
  5. SENNA (SENNA ALEXANDRINA) (TABLETS) [Concomitant]

REACTIONS (3)
  - CSF VIRUS IDENTIFIED [None]
  - HERPES VIRUS INFECTION [None]
  - MUSCULAR WEAKNESS [None]
